FAERS Safety Report 8813651 (Version 1)
Quarter: 2012Q4

REPORT INFORMATION
  Report Type: 
  Country: GB (occurrence: GB)
  Receive Date: 20120927
  Receipt Date: 20120927
  Transmission Date: 20130627
  Serious: Yes (Hospitalization, Other)
  Sender: FDA-Public Use
  Company Number: PHFR2012GB004747

PATIENT
  Age: 22 Year
  Sex: Female

DRUGS (7)
  1. CLOZAPINE [Suspect]
     Indication: PERSONALITY DISORDER
     Dosage: UNK UKN, UNK
     Route: 048
     Dates: start: 20120802, end: 20120809
  2. BECLOMETHASONE [Concomitant]
  3. DIAZEPAM [Concomitant]
  4. NORETHISTERONE [Concomitant]
  5. OMEPRAZOLE [Concomitant]
  6. SALBUTAMOL [Concomitant]
  7. VALPROATE SEMISODIUM [Concomitant]

REACTIONS (7)
  - Productive cough [Recovered/Resolved]
  - Chest pain [Recovered/Resolved]
  - Pyrexia [Recovered/Resolved]
  - Heart rate increased [Recovered/Resolved]
  - Pulmonary function test decreased [Recovering/Resolving]
  - C-reactive protein increased [Unknown]
  - Blood pressure decreased [Unknown]
